FAERS Safety Report 20246326 (Version 1)
Quarter: 2021Q4

REPORT INFORMATION
  Report Type: Spontaneous
  Country: US (occurrence: US)
  Receive Date: 20211229
  Receipt Date: 20211229
  Transmission Date: 20220303
  Serious: No
  Sender: FDA-Public Use
  Company Number: US-PERRIGO-21US002587

PATIENT
  Age: 73 Year
  Sex: Female
  Weight: 63.492 kg

DRUGS (5)
  1. GUAIFENESIN [Suspect]
     Active Substance: GUAIFENESIN
     Indication: Respiratory tract congestion
     Dosage: 600 MG. EVERY 12 HOURS
     Route: 048
     Dates: start: 20210130, end: 20210215
  2. LEXAPRO [Concomitant]
     Active Substance: ESCITALOPRAM OXALATE
     Indication: Mental disorder
     Dosage: UNKNOWN, UNKNOWN
     Route: 065
     Dates: start: 2020
  3. LIPITOR [Concomitant]
     Active Substance: ATORVASTATIN CALCIUM
     Indication: Osteoporosis
     Dosage: UNKNOWN, UNKNOWN
     Route: 065
  4. ALENDRONATE [Concomitant]
     Active Substance: ALENDRONATE SODIUM
     Indication: Osteoporosis
     Dosage: 70 MG, UNKNOWN
     Route: 065
     Dates: start: 2016
  5. METOPROLOL [Concomitant]
     Active Substance: METOPROLOL
     Indication: Blood cholesterol abnormal
     Dosage: UNKNOWN, UNKNOWN
     Route: 065
     Dates: start: 2011

REACTIONS (2)
  - Drug ineffective [Unknown]
  - Incorrect product administration duration [Recovered/Resolved]

NARRATIVE: CASE EVENT DATE: 20210130
